FAERS Safety Report 7648966-0 (Version None)
Quarter: 2011Q3

REPORT INFORMATION
  Report Type: 
  Country: None (occurrence: None)
  Receive Date: 20110802
  Receipt Date: 20110722
  Transmission Date: 20111222
  Serious: Yes (Hospitalization)
  Sender: FDA-Public Use
  Company Number: US-BIOGENIDEC-2010BI026171

PATIENT
  Age: 53 Year
  Sex: Female
  Weight: 71 kg

DRUGS (2)
  1. PAROXETINE HCL [Concomitant]
     Indication: DEPRESSION
  2. TYSABRI [Suspect]
     Indication: MULTIPLE SCLEROSIS
     Route: 042
     Dates: start: 20061220

REACTIONS (11)
  - SUICIDE ATTEMPT [None]
  - RIB FRACTURE [None]
  - MUSCLE SPASTICITY [None]
  - MULTIPLE SCLEROSIS RELAPSE [None]
  - CARPAL TUNNEL SYNDROME [None]
  - ANXIETY [None]
  - VOMITING [None]
  - BALANCE DISORDER [None]
  - GAIT DISTURBANCE [None]
  - DEPRESSION [None]
  - ALCOHOL POISONING [None]
